FAERS Safety Report 4597147-6 (Version None)
Quarter: 2005Q1

REPORT INFORMATION
  Report Type: 
  Country: None (occurrence: None)
  Receive Date: 20050301
  Receipt Date: 20050217
  Transmission Date: 20050727
  Serious: Yes (Hospitalization)
  Sender: FDA-Public Use
  Company Number: 2005034865

PATIENT
  Sex: Male

DRUGS (1)
  1. BEGALIN P (SULBACTAM AMPICILLIN) [Suspect]
     Indication: ILL-DEFINED DISORDER
     Dosage: PARENTERAL
     Route: 051
     Dates: start: 20050101, end: 20050101

REACTIONS (2)
  - HYPERSENSITIVITY [None]
  - SHOCK [None]
